FAERS Safety Report 6216238-7 (Version None)
Quarter: 2009Q2

REPORT INFORMATION
  Report Type: 
  Country: None (occurrence: None)
  Receive Date: 20090605
  Receipt Date: 20090526
  Transmission Date: 20091009
  Serious: Yes (Hospitalization)
  Sender: FDA-Public Use
  Company Number: A0788843A

PATIENT
  Sex: Male
  Weight: 84.5 kg

DRUGS (11)
  1. AVANDAMET [Suspect]
     Indication: TYPE 2 DIABETES MELLITUS
     Route: 048
  2. AVANDIA [Suspect]
     Indication: TYPE 2 DIABETES MELLITUS
     Dosage: 4MG PER DAY
     Route: 048
     Dates: end: 20070101
  3. LOTREL [Concomitant]
  4. LIPITOR [Concomitant]
  5. ZYRTEC [Concomitant]
  6. DARVOCET [Concomitant]
  7. PLETAL [Concomitant]
  8. GLUCOPHAGE XR [Concomitant]
  9. FERROUS SULFATE TAB [Concomitant]
  10. TRICOR [Concomitant]
  11. INSULIN [Concomitant]

REACTIONS (17)
  - ANAEMIA [None]
  - ANAEMIA OF CHRONIC DISEASE [None]
  - ARTERIAL DISORDER [None]
  - ATELECTASIS [None]
  - BUNDLE BRANCH BLOCK RIGHT [None]
  - CARDIAC FAILURE CONGESTIVE [None]
  - CORONARY ARTERY DISEASE [None]
  - GASTROINTESTINAL HAEMORRHAGE [None]
  - HYPOTENSION [None]
  - LOBAR PNEUMONIA [None]
  - MYOCARDIAL INFARCTION [None]
  - PERIPHERAL VASCULAR DISORDER [None]
  - PLEURAL EFFUSION [None]
  - PULMONARY OEDEMA [None]
  - QRS AXIS ABNORMAL [None]
  - RENAL ARTERY OCCLUSION [None]
  - RENAL FAILURE ACUTE [None]
